FAERS Safety Report 17876383 (Version 1)
Quarter: 2020Q2

REPORT INFORMATION
  Report Type: Spontaneous
  Country: PR (occurrence: PR)
  Receive Date: 20200609
  Receipt Date: 20200609
  Transmission Date: 20200714
  Serious: Yes (Other)
  Sender: FDA-Public Use
  Company Number: PR-AMNEAL PHARMACEUTICALS-2020-AMRX-01569

PATIENT
  Age: 29 Year
  Sex: Female
  Weight: 66 kg

DRUGS (4)
  1. NAPROXEN. [Concomitant]
     Active Substance: NAPROXEN
     Indication: PELVIC PAIN
     Dosage: 250 MILLIGRAM/KILOGRAM, AS NEEDED
     Route: 048
     Dates: start: 20190402
  2. VIT D [Concomitant]
     Active Substance: VITAMIN D NOS
     Indication: VITAMIN D DEFICIENCY
     Dosage: 200 INTERNATIONAL UNIT, DAILY
     Route: 048
     Dates: start: 201808
  3. ACTIVELLA [Suspect]
     Active Substance: ESTRADIOL\NORETHINDRONE ACETATE
     Indication: ENDOMETRIOSIS
     Dosage: 1 DOSAGE FORM, DAILY
     Route: 048
     Dates: start: 20190108, end: 20190603
  4. ELAGOLIX [Suspect]
     Active Substance: ELAGOLIX
     Indication: ENDOMETRIOSIS
     Dosage: 2 DOSAGE FORM, 1 /DAY (400 MG, 200 MG,2 IN 1 D)
     Route: 048
     Dates: start: 20190108, end: 20190603

REACTIONS (2)
  - Exposure during pregnancy [Unknown]
  - Ectopic pregnancy [Recovered/Resolved]

NARRATIVE: CASE EVENT DATE: 20190702
